FAERS Safety Report 8019118 (Version 4)
Quarter: 2013Q1

REPORT INFORMATION
  Report Type: Report from Study
  Country: US (occurrence: US)
  Receive Date: 20110701
  Receipt Date: 20130212
  Transmission Date: 20140127
  Serious: Yes (Hospitalization)
  Sender: FDA-Public Use
  Company Number: US-ROCHE-785970

PATIENT
  Age: 63 Year
  Sex: Male

DRUGS (6)
  1. PEG-INTERFERON ALFA 2A [Suspect]
     Indication: HEPATITIS C
     Dosage: LAST DOSE PRIOR TO SAE: 14 JUNE 2011.
     Route: 058
     Dates: start: 20110228, end: 20110614
  2. RIBAVIRIN [Suspect]
     Indication: HEPATITIS C
     Dosage: LAST DOSE PRIOR TO SAE: 14 JUNE 2011.
     Route: 048
     Dates: start: 20110228, end: 20110619
  3. TG4040 [Suspect]
     Indication: HEPATITIS C
     Dosage: DOSE: 0.5 ML AT THREE MONTHS. LAST DOSE PRIOR TO SAE: 11 APRIL 2011.
     Route: 065
     Dates: start: 20110328, end: 20110411
  4. CONTROLOC [Concomitant]
     Route: 065
     Dates: start: 20100310
  5. SUCRALFATE [Concomitant]
     Route: 065
     Dates: start: 20100310
  6. IRON POLYMALTOSE [Concomitant]
     Route: 065
     Dates: start: 20110423

REACTIONS (10)
  - Renal failure acute [Recovered/Resolved]
  - Urinary tract infection [Unknown]
  - Anaemia [Unknown]
  - Pyelonephritis acute [Recovered/Resolved]
  - Anaemia [Recovered/Resolved]
  - Escherichia urinary tract infection [None]
  - Asthenia [None]
  - Hepatomegaly [None]
  - Hyponatraemia [None]
  - Splenomegaly [None]
